FAERS Safety Report 13496305 (Version 3)
Quarter: 2017Q2

REPORT INFORMATION
  Report Type: Report from Study
  Country: US (occurrence: US)
  Receive Date: 20170428
  Receipt Date: 20170503
  Transmission Date: 20170830
  Serious: Yes (Other)
  Sender: FDA-Public Use
  Company Number: US-AMGEN-USASL2017044677

PATIENT
  Age: 56 Year
  Sex: Female

DRUGS (9)
  1. AZELASTINE [Concomitant]
     Active Substance: AZELASTINE
     Dosage: ONE SPRAY EACH NOSTRIL,BID
  2. CYCLOBENZAPRINE. [Concomitant]
     Active Substance: CYCLOBENZAPRINE
     Dosage: 10 MG, TID
     Route: 048
  3. VENTOLIN [Concomitant]
     Active Substance: ALBUTEROL SULFATE
     Dosage: UNK
  4. FLUOXETINE [Concomitant]
     Active Substance: FLUOXETINE HYDROCHLORIDE
     Dosage: 20 MG, QD
     Route: 048
  5. REPATHA [Suspect]
     Active Substance: EVOLOCUMAB
     Indication: PRODUCT USED FOR UNKNOWN INDICATION
     Dosage: UNK UNK, Q2WK
     Route: 065
     Dates: start: 2016, end: 201702
  6. RANITIDINE. [Concomitant]
     Active Substance: RANITIDINE
     Dosage: 300 MG, QD
  7. SYMBICORT [Concomitant]
     Active Substance: BUDESONIDE\FORMOTEROL FUMARATE DIHYDRATE
     Dosage: TWO PUFFS, BID
  8. CLARITIN [Concomitant]
     Active Substance: LORATADINE
     Dosage: 10 MG, QD
  9. VERAPAMIL [Concomitant]
     Active Substance: VERAPAMIL HYDROCHLORIDE
     Dosage: 120 MG, QD
     Route: 048

REACTIONS (8)
  - Macule [Unknown]
  - Blood pressure increased [Recovering/Resolving]
  - Muscular weakness [Not Recovered/Not Resolved]
  - Arthralgia [Recovered/Resolved]
  - Anxiety [Recovering/Resolving]
  - Myalgia [Not Recovered/Not Resolved]
  - Gait disturbance [Unknown]
  - Muscle spasms [Recovered/Resolved]

NARRATIVE: CASE EVENT DATE: 201702
